FAERS Safety Report 9234107 (Version 1)
Quarter: 2013Q2

REPORT INFORMATION
  Report Type: Spontaneous
  Country: US (occurrence: US)
  Receive Date: 20130416
  Receipt Date: 20130416
  Transmission Date: 20140414
  Serious: Yes (Hospitalization)
  Sender: FDA-Public Use
  Company Number: US-ELI_LILLY_AND_COMPANY-US201112005552

PATIENT
  Sex: Female
  Weight: 43.54 kg

DRUGS (3)
  1. FORTEO [Suspect]
     Indication: OSTEOPOROSIS
     Dosage: 20 UG, QD
     Route: 065
     Dates: start: 20110610, end: 20110821
  2. FORTEO [Suspect]
     Dosage: 20 UG, OTHER (M,W,F)
     Route: 065
     Dates: start: 20111017, end: 20120213
  3. FORTEO [Suspect]
     Dosage: UNK, 2/W (M,TH)

REACTIONS (17)
  - Head injury [Unknown]
  - Concussion [Unknown]
  - Fall [Unknown]
  - Weight decreased [Not Recovered/Not Resolved]
  - Heart rate increased [Unknown]
  - Decreased appetite [Not Recovered/Not Resolved]
  - Tremor [Unknown]
  - Feeling cold [Not Recovered/Not Resolved]
  - Chills [Unknown]
  - Dysgeusia [Unknown]
  - Alopecia [Unknown]
  - Fear [Unknown]
  - Chest pain [Unknown]
  - Asthenia [Unknown]
  - Nausea [Unknown]
  - Amnesia [Unknown]
  - Inappropriate schedule of drug administration [Unknown]
